FAERS Safety Report 4950500-0 (Version None)
Quarter: 2006Q1

REPORT INFORMATION
  Report Type: 
  Country: None (occurrence: None)
  Receive Date: 20060322
  Receipt Date: 20060313
  Transmission Date: 20060701
  Serious: Yes (Hospitalization, Other)
  Sender: FDA-Public Use
  Company Number: GB-GLAXOSMITHKLINE-B0415668A

PATIENT
  Age: 80 Year
  Sex: Male

DRUGS (3)
  1. AMOXICILLIN + CLAVULANATE POTASSIUM [Suspect]
     Route: 048
     Dates: start: 20060220, end: 20060301
  2. SALBUTAMOL [Concomitant]
     Dosage: 400MCG PER DAY
     Dates: start: 20041001
  3. FLUTICASONE PROPIONATE [Concomitant]
     Dosage: 100MCG PER DAY
     Route: 065
     Dates: start: 20041001

REACTIONS (1)
  - JAUNDICE CHOLESTATIC [None]
